FAERS Safety Report 10561226 (Version 1)
Quarter: 2014Q4

REPORT INFORMATION
  Report Type: Spontaneous
  Country: US (occurrence: US)
  Receive Date: 20141103
  Receipt Date: 20141103
  Transmission Date: 20150529
  Serious: No
  Sender: FDA-Public Use
  Company Number: US-BAYER-2014-156239

PATIENT
  Sex: Female

DRUGS (1)
  1. NATAZIA [Suspect]
     Active Substance: DIENOGEST\ESTRADIOL VALERATE
     Indication: HORMONE LEVEL ABNORMAL
     Dosage: UNK
     Dates: start: 20141008, end: 20141018

REACTIONS (4)
  - Weight increased [None]
  - Abdominal distension [None]
  - Product use issue [None]
  - Incorrect drug administration duration [None]
